FAERS Safety Report 7719702-4 (Version None)
Quarter: 2011Q3

REPORT INFORMATION
  Report Type: 
  Country: None (occurrence: None)
  Receive Date: 20110830
  Receipt Date: 20090413
  Transmission Date: 20111222
  Serious: Yes (Other)
  Sender: FDA-Public Use
  Company Number: PHHY2011TW31304

PATIENT
  Sex: Male

DRUGS (1)
  1. GLEEVEC [Suspect]
     Indication: CHRONIC MYELOID LEUKAEMIA
     Dosage: 600 MG, UNK
     Route: 048

REACTIONS (8)
  - SKIN DISCOLOURATION [None]
  - SKIN EXFOLIATION [None]
  - SKIN ATROPHY [None]
  - NERVE INJURY [None]
  - NAUSEA [None]
  - DEPRESSION [None]
  - NASOPHARYNGITIS [None]
  - FRACTURE [None]
